FAERS Safety Report 6739536-7 (Version None)
Quarter: 2010Q2

REPORT INFORMATION
  Report Type: 
  Country: None (occurrence: None)
  Receive Date: 20100521
  Receipt Date: 20100511
  Transmission Date: 20101027
  Serious: No
  Sender: FDA-Public Use
  Company Number: 7000551

PATIENT
  Age: 52 Year
  Sex: Female

DRUGS (3)
  1. REBIF [Suspect]
     Indication: DRUG USE FOR UNKNOWN INDICATION
     Dosage: 44 MCG, 3 IN 1 WK, SUBCUTANEOUS
     Route: 058
     Dates: start: 20090601
  2. CYMBALTA [Concomitant]
  3. GABAPENTIN [Concomitant]

REACTIONS (5)
  - CHOLELITHIASIS [None]
  - INJECTION SITE ERYTHEMA [None]
  - INJECTION SITE HAEMATOMA [None]
  - INJECTION SITE PRURITUS [None]
  - WEIGHT INCREASED [None]
